FAERS Safety Report 15743091 (Version 2)
Quarter: 2019Q1

REPORT INFORMATION
  Report Type: Spontaneous
  Country: US (occurrence: US)
  Receive Date: 20181220
  Receipt Date: 20190108
  Transmission Date: 20190417
  Serious: Yes (Life-Threatening, Other)
  Sender: FDA-Public Use
  Company Number: US-ROCHE-2232715

PATIENT
  Age: 79 Year
  Sex: Female
  Weight: 79.9 kg

DRUGS (10)
  1. AVASTIN [Suspect]
     Active Substance: BEVACIZUMAB
     Indication: OVARIAN CANCER
     Dosage: IN COMBINATION WITH CARBOPLATIN AND PACLITAXEL
     Route: 042
  2. CARBOPLATIN. [Suspect]
     Active Substance: CARBOPLATIN
     Indication: OVARIAN CANCER
     Dosage: AUC2:3 WEEKS ON AND 1 WEEK OFF
     Route: 042
     Dates: start: 20181004
  3. NEULASTA [Concomitant]
     Active Substance: PEGFILGRASTIM
     Indication: OVARIAN CANCER
     Route: 058
     Dates: start: 20181005
  4. AVASTIN [Suspect]
     Active Substance: BEVACIZUMAB
     Indication: ENDOMETRIAL CANCER
     Dosage: 7.5 MG/KG EVERY OTHER WEEK
     Route: 042
  5. DEXAMETHASONE. [Concomitant]
     Active Substance: DEXAMETHASONE
     Route: 048
     Dates: start: 20181004
  6. AVASTIN [Suspect]
     Active Substance: BEVACIZUMAB
     Route: 042
     Dates: start: 20181101, end: 20181213
  7. TAXOL [Suspect]
     Active Substance: PACLITAXEL
     Indication: ENDOMETRIAL CANCER
  8. SANCUSO [Concomitant]
     Active Substance: GRANISETRON
     Indication: NAUSEA
     Route: 062
     Dates: start: 20181004
  9. TAXOL [Suspect]
     Active Substance: PACLITAXEL
     Indication: OVARIAN CANCER
     Dosage: 3 WEEKS ON AND 1 WEEK OFF
     Route: 042
     Dates: start: 20181004
  10. ELIQUIS [Concomitant]
     Active Substance: APIXABAN
     Route: 048
     Dates: start: 20181201

REACTIONS (7)
  - Off label use [Unknown]
  - Neck pain [Unknown]
  - Pulmonary embolism [Recovering/Resolving]
  - Intentional product use issue [Unknown]
  - Headache [Unknown]
  - Palpitations [Unknown]
  - Dyspnoea [Unknown]

NARRATIVE: CASE EVENT DATE: 20181128
